FAERS Safety Report 23409864 (Version 1)
Quarter: 2024Q1

REPORT INFORMATION
  Report Type: Report from Study
  Country: AR (occurrence: AR)
  Receive Date: 20240117
  Receipt Date: 20240117
  Transmission Date: 20240410
  Serious: Yes (Other)
  Sender: FDA-Public Use
  Company Number: AR-AMGEN-ARGSL2024003653

PATIENT
  Age: 5 Year
  Sex: Male

DRUGS (1)
  1. BLINCYTO [Suspect]
     Active Substance: BLINATUMOMAB
     Indication: Lymphocytic leukaemia
     Dosage: UNK, QD
     Route: 065
     Dates: start: 20231215

REACTIONS (2)
  - Lymphocytic leukaemia [Unknown]
  - Drug ineffective [Unknown]
